FAERS Safety Report 8560638-7 (Version None)
Quarter: 2012Q3

REPORT INFORMATION
  Report Type: 
  Country: None (occurrence: None)
  Receive Date: 20120802
  Receipt Date: 20120723
  Transmission Date: 20120928
  Serious: Yes (Hospitalization)
  Sender: FDA-Public Use
  Company Number: PHHY2012FR065402

PATIENT
  Age: 69 Year
  Sex: Female

DRUGS (3)
  1. HYDROCHLOROTHIAZIDE [Suspect]
  2. ALLOPURINOL [Suspect]
  3. LOSARTAN POTASSIUM [Suspect]

REACTIONS (14)
  - THROMBOCYTOPENIA [None]
  - RASH MACULO-PAPULAR [None]
  - DRUG RASH WITH EOSINOPHILIA AND SYSTEMIC SYMPTOMS [None]
  - MENINGOENCEPHALITIS HERPETIC [None]
  - CYTOLYTIC HEPATITIS [None]
  - DISEASE RECURRENCE [None]
  - ROSEOLOVIRUS TEST POSITIVE [None]
  - ANAEMIA [None]
  - EOSINOPHILIA [None]
  - RASH GENERALISED [None]
  - EPSTEIN-BARR VIRUS TEST POSITIVE [None]
  - HYPERTHERMIA [None]
  - SWELLING FACE [None]
  - LYMPHADENOPATHY [None]
